FAERS Safety Report 7215245-5 (Version None)
Quarter: 2011Q1

REPORT INFORMATION
  Report Type: 
  Country: None (occurrence: None)
  Receive Date: 20110107
  Receipt Date: 20101228
  Transmission Date: 20110831
  Serious: Yes (Other)
  Sender: FDA-Public Use
  Company Number: PHHY2010US86259

PATIENT
  Sex: Female

DRUGS (1)
  1. EXJADE [Suspect]
     Indication: SICKLE CELL ANAEMIA
     Dosage: 375 MG/DAY
     Route: 048
     Dates: start: 20100625

REACTIONS (4)
  - ASTHMA [None]
  - PULMONARY CONGESTION [None]
  - VOMITING [None]
  - INFECTION [None]
